FAERS Safety Report 5890204-3 (Version None)
Quarter: 2008Q3

REPORT INFORMATION
  Report Type: 
  Country: None (occurrence: None)
  Receive Date: 20080919
  Receipt Date: 20080909
  Transmission Date: 20090109
  Serious: Yes (Other)
  Sender: FDA-Public Use
  Company Number: US-PFIZER INC-2008076105

PATIENT
  Sex: Male

DRUGS (3)
  1. TIKOSYN [Suspect]
  2. CEPHALEXIN [Suspect]
  3. PERCOCET [Suspect]

REACTIONS (1)
  - SKIN NEOPLASM EXCISION [None]
